FAERS Safety Report 13000269 (Version 3)
Quarter: 2016Q4

REPORT INFORMATION
  Report Type: Spontaneous
  Country: JP (occurrence: JP)
  Receive Date: 20161205
  Receipt Date: 20161226
  Transmission Date: 20170207
  Serious: No
  Sender: FDA-Public Use
  Company Number: JP-009507513-1612JPN001270

PATIENT
  Age: 89 Year
  Sex: Female

DRUGS (5)
  1. MUCOSAL [Concomitant]
     Indication: CHRONIC SINUSITIS
     Dosage: 15 MG, TID
     Route: 048
     Dates: start: 20161128
  2. FOSMICIN [Concomitant]
     Active Substance: FOSFOMYCIN CALCIUM
     Indication: OTITIS MEDIA CHRONIC
     Dosage: 250 MG, TID
     Route: 048
     Dates: start: 20161128
  3. DESALEX TABLETS 5MG [Suspect]
     Active Substance: DESLORATADINE
     Indication: RHINITIS ALLERGIC
     Dosage: 5 MG, QD
     Route: 048
     Dates: start: 20161128, end: 20161128
  4. ALLEGRA [Concomitant]
     Active Substance: FEXOFENADINE HYDROCHLORIDE
     Dosage: 30 MG, BID
     Route: 048
     Dates: end: 20161127
  5. MIYA-BM [Concomitant]
     Active Substance: CLOSTRIDIUM BUTYRICUM SPORES STRAIN M-55
     Indication: PROPHYLAXIS AGAINST DIARRHOEA
     Dosage: 20 MG, TID
     Route: 048
     Dates: start: 20161128

REACTIONS (3)
  - Tremor [Recovered/Resolved]
  - Hallucination [Recovered/Resolved]
  - Palpitations [Recovered/Resolved]

NARRATIVE: CASE EVENT DATE: 20161128
